FAERS Safety Report 12061604 (Version 1)
Quarter: 2016Q1

REPORT INFORMATION
  Report Type: Spontaneous
  Country: US (occurrence: US)
  Receive Date: 20160210
  Receipt Date: 20160210
  Transmission Date: 20160526
  Serious: No
  Sender: FDA-Public Use
  Company Number: US-ALLERGAN-1503932US

PATIENT
  Sex: Male

DRUGS (1)
  1. BOTOX [Suspect]
     Active Substance: ONABOTULINUMTOXINA
     Indication: TORTICOLLIS
     Dosage: 300 UNITS, SINGLE
     Dates: start: 20141110, end: 20141110

REACTIONS (3)
  - Injection site swelling [Unknown]
  - Local swelling [Unknown]
  - Eye swelling [Unknown]
